FAERS Safety Report 7150793-8 (Version None)
Quarter: 2010Q4

REPORT INFORMATION
  Report Type: 
  Country: None (occurrence: None)
  Receive Date: 20101210
  Receipt Date: 20101203
  Transmission Date: 20110411
  Serious: Yes (Other)
  Sender: FDA-Public Use
  Company Number: US-AMGEN-USASP2010007611

PATIENT

DRUGS (12)
  1. NEUPOGEN [Suspect]
     Indication: NEUTROPENIA
     Dates: start: 20100501
  2. METOPROLOL [Concomitant]
  3. SUCCINATE SODIUM [Concomitant]
  4. SYNTHROID [Concomitant]
  5. VICODIN [Concomitant]
  6. EMEND                              /01627301/ [Concomitant]
  7. ZOFRAN [Concomitant]
  8. XANAX [Concomitant]
  9. SENNA                              /00142201/ [Concomitant]
  10. ADRIAMYCIN PFS [Concomitant]
  11. VINBLASTINE [Concomitant]
  12. DACARBAZINE [Concomitant]

REACTIONS (5)
  - ASTHENIA [None]
  - FEELING ABNORMAL [None]
  - INJECTION SITE PAIN [None]
  - THROMBOSIS [None]
  - WHITE BLOOD CELL COUNT DECREASED [None]
